FAERS Safety Report 5967656-3 (Version None)
Quarter: 2008Q4

REPORT INFORMATION
  Report Type: 
  Country: None (occurrence: None)
  Receive Date: 20081126
  Receipt Date: 20081119
  Transmission Date: 20090506
  Serious: Yes (Death)
  Sender: FDA-Public Use
  Company Number: PHHY2008JP24130

PATIENT
  Age: 62 Year
  Sex: Male

DRUGS (5)
  1. EXJADE [Suspect]
     Indication: IRON OVERLOAD
     Dosage: 500 MG/DAY
     Route: 048
     Dates: start: 20080701
  2. GLAKAY [Concomitant]
     Dosage: 15 MG/DAY
     Route: 048
  3. RABEPRAZOLE SODIUM [Concomitant]
     Dosage: 10 MG/DAY
     Route: 048
  4. NITRODERM [Concomitant]
     Route: 061
  5. ALDACTONE [Concomitant]
     Dosage: 50 MG/DAY
     Route: 048

REACTIONS (2)
  - CEREBRAL HAEMORRHAGE [None]
  - PLATELET COUNT DECREASED [None]
